FAERS Safety Report 14368247 (Version 4)
Quarter: 2022Q3

REPORT INFORMATION
  Report Type: Spontaneous
  Country: DK (occurrence: DK)
  Receive Date: 20180109
  Receipt Date: 20220819
  Transmission Date: 20221027
  Serious: Yes (Other)
  Sender: FDA-Public Use
  Company Number: DK-SA-2017SA119461

PATIENT
  Sex: Female

DRUGS (12)
  1. ETOPOSIDE [Suspect]
     Active Substance: ETOPOSIDE
     Indication: Gestational trophoblastic tumour
     Dosage: 100 MG/M2, Q3WK, DAY 1-5
     Route: 042
  2. ETOPOSIDE [Suspect]
     Active Substance: ETOPOSIDE
     Dosage: 165 MG/M2, DAY 1-3, 3 WEEK INTERVAL
     Route: 042
     Dates: start: 2010
  3. CISPLATIN [Suspect]
     Active Substance: CISPLATIN
     Indication: Gestational trophoblastic tumour
     Dosage: 20 MG/M2, Q3W, 20 MG/M2, Q3WK, DAY 1-5
     Route: 042
  4. CISPLATIN [Suspect]
     Active Substance: CISPLATIN
     Dosage: 50 MILLIGRAM/SQ. METER, QD (50 MG/M2, Q3WK, DAY 1-2)
     Route: 042
  5. CISPLATIN [Suspect]
     Active Substance: CISPLATIN
     Dosage: 20 MILLIGRAM/SQ. METER, QD (20 MG/M2, Q3WK, DAY 1-5)
     Route: 042
  6. METHOTREXATE [Suspect]
     Active Substance: METHOTREXATE
     Indication: Gestational trophoblastic tumour
     Dosage: 10 MG, QD
     Route: 048
  7. METHOTREXATE [Suspect]
     Active Substance: METHOTREXATE
     Dosage: 10 MG, QD
     Route: 048
  8. METHOTREXATE [Suspect]
     Active Substance: METHOTREXATE
     Dosage: 2.5 MILLIGRAM, Q6H (2.5 MG,QID)
     Route: 065
  9. METHOTREXATE [Suspect]
     Active Substance: METHOTREXATE
     Dosage: 2.5 MG,QID,4 TIMES A DAY FOR 5 DAYS
     Route: 065
  10. BLEOMYCIN [Suspect]
     Active Substance: BLEOMYCIN SULFATE
     Indication: Gestational trophoblastic tumour
     Dosage: 30000 IU, QW, 30000 IU,QW,DAY 2,9, AND 16, REPEATED EVERY 3 WEEKS
     Route: 042
  11. DACTINOMYCIN [Concomitant]
     Active Substance: DACTINOMYCIN
     Indication: Product used for unknown indication
     Dosage: 0.5 MG, MONTHLY, .5 MG,QM; SCHEDULE REPEATED EVERY 4 WEEKS (ALTERNATIVELY EVERY3 WEEKS)
     Route: 042
  12. LEUCOVORIN CALCIUM [Concomitant]
     Active Substance: LEUCOVORIN CALCIUM
     Indication: Drug toxicity prophylaxis
     Dosage: 1 MILLILITER, MONTHLY (1 ML,QM)
     Route: 048

REACTIONS (4)
  - Respiratory symptom [Unknown]
  - Drug resistance [Unknown]
  - Product use in unapproved indication [Unknown]
  - Anaemia [Unknown]
